FAERS Safety Report 22300396 (Version 2)
Quarter: 2023Q2

REPORT INFORMATION
  Report Type: Spontaneous
  Country: NZ (occurrence: NZ)
  Receive Date: 20230509
  Receipt Date: 20230523
  Transmission Date: 20230721
  Serious: Yes (Other)
  Sender: FDA-Public Use
  Company Number: NZ-BRISTOL-MYERS SQUIBB COMPANY-2023-063578

PATIENT
  Age: 31 Year
  Sex: Male

DRUGS (2)
  1. THALOMID [Suspect]
     Active Substance: THALIDOMIDE
     Indication: Angiodysplasia
  2. THALOMID [Suspect]
     Active Substance: THALIDOMIDE

REACTIONS (4)
  - C-reactive protein decreased [Unknown]
  - Neutropenia [Unknown]
  - Off label use [Unknown]
  - Paraesthesia [Unknown]

NARRATIVE: CASE EVENT DATE: 20230301
